FAERS Safety Report 4713658-4 (Version None)
Quarter: 2005Q3

REPORT INFORMATION
  Report Type: 
  Country: None (occurrence: None)
  Receive Date: 20050712
  Receipt Date: 20050627
  Transmission Date: 20060218
  Serious: Yes (Life-Threatening)
  Sender: FDA-Public Use
  Company Number: 11708

PATIENT
  Age: 57 Year
  Sex: Female

DRUGS (7)
  1. DOXORUBICIN HCL [Suspect]
     Indication: BREAST CANCER
     Dosage: 75 MG/M2 IV
     Route: 042
     Dates: start: 20050225
  2. CYCLOPHOSPHAMIDE [Suspect]
  3. METHOTREXATE [Suspect]
  4. FLUOROURACIL [Suspect]
  5. DOMPERIDONE [Concomitant]
  6. DEXAMETHASONE [Concomitant]
  7. FLUOXETINE [Concomitant]

REACTIONS (4)
  - NEUTROPENIA [None]
  - PHARYNGITIS [None]
  - PYREXIA [None]
  - RHINORRHOEA [None]
